FAERS Safety Report 13456651 (Version 1)
Quarter: 2017Q2

REPORT INFORMATION
  Report Type: Spontaneous
  Country: US (occurrence: US)
  Receive Date: 20170418
  Receipt Date: 20170418
  Transmission Date: 20170830
  Serious: Yes (Hospitalization, Other)
  Sender: FDA-Public Use
  Company Number: US-SEBELA IRELAND LIMITED-2017SEB00046

PATIENT
  Age: 51 Year
  Sex: Male

DRUGS (3)
  1. IMURAN [Suspect]
     Active Substance: AZATHIOPRINE
  2. HUMIRA [Suspect]
     Active Substance: ADALIMUMAB
  3. ENTYVIO [Suspect]
     Active Substance: VEDOLIZUMAB
     Dosage: 300 MG, UNK
     Route: 042
     Dates: start: 20161214, end: 20161214

REACTIONS (1)
  - Hepatosplenic T-cell lymphoma [Not Recovered/Not Resolved]

NARRATIVE: CASE EVENT DATE: 20161223
